FAERS Safety Report 4385234-7 (Version None)
Quarter: 2004Q2

REPORT INFORMATION
  Report Type: 
  Country: None (occurrence: None)
  Receive Date: 20040625
  Receipt Date: 20040622
  Transmission Date: 20050107
  Serious: Yes (Hospitalization)
  Sender: FDA-Public Use
  Company Number: DE-MERCK-0406DEU00147

PATIENT
  Age: 80 Year
  Sex: Male

DRUGS (2)
  1. VIOXX [Suspect]
     Indication: SPONDYLOSIS
     Route: 048
     Dates: start: 20030606, end: 20040612
  2. VIOXX [Suspect]
     Indication: OSTEOARTHRITIS
     Route: 048
     Dates: start: 20030606, end: 20040612

REACTIONS (1)
  - JAUNDICE CHOLESTATIC [None]
